FAERS Safety Report 18212440 (Version 2)
Quarter: 2020Q4

REPORT INFORMATION
  Report Type: Spontaneous
  Country: AU (occurrence: AU)
  Receive Date: 20200831
  Receipt Date: 20201008
  Transmission Date: 20210113
  Serious: Yes (Other)
  Sender: FDA-Public Use
  Company Number: NVSC2020AU238851

PATIENT
  Age: 41 Year
  Sex: Female

DRUGS (10)
  1. ETANERCEPT [Suspect]
     Active Substance: ETANERCEPT
     Indication: CHRONIC GRAFT VERSUS HOST DISEASE
     Route: 065
  2. CYCLOSPORINE. [Suspect]
     Active Substance: CYCLOSPORINE
     Indication: CHRONIC GRAFT VERSUS HOST DISEASE
     Route: 065
  3. TACROLIMUS. [Suspect]
     Active Substance: TACROLIMUS
     Indication: CHRONIC GRAFT VERSUS HOST DISEASE
     Route: 065
  4. METHYLPREDNISOLONE. [Suspect]
     Active Substance: METHYLPREDNISOLONE
     Indication: CHRONIC GRAFT VERSUS HOST DISEASE
     Route: 065
  5. MYCOPHENOLATE MOFETIL. [Suspect]
     Active Substance: MYCOPHENOLATE MOFETIL
     Indication: CHRONIC GRAFT VERSUS HOST DISEASE
     Route: 065
  6. DEXAMETHASONE. [Suspect]
     Active Substance: DEXAMETHASONE
     Indication: CHRONIC GRAFT VERSUS HOST DISEASE
     Dosage: UNK
     Route: 065
  7. PREDNISONE. [Suspect]
     Active Substance: PREDNISONE
     Indication: PRODUCT USED FOR UNKNOWN INDICATION
     Route: 065
  8. RITUXIMAB. [Suspect]
     Active Substance: RITUXIMAB
     Indication: CHRONIC GRAFT VERSUS HOST DISEASE
     Dosage: UNK
     Route: 065
  9. METHOTREXATE. [Suspect]
     Active Substance: METHOTREXATE
     Indication: CHRONIC GRAFT VERSUS HOST DISEASE
     Route: 065
  10. AZITHROMYCIN ANHYDROUS. [Suspect]
     Active Substance: AZITHROMYCIN ANHYDROUS
     Indication: CHRONIC GRAFT VERSUS HOST DISEASE
     Route: 065

REACTIONS (6)
  - Neutropenic sepsis [Unknown]
  - Mucosal inflammation [Unknown]
  - Acute myeloid leukaemia (in remission) [Unknown]
  - Acute myeloid leukaemia [Unknown]
  - Scleroderma [Unknown]
  - Graft versus host disease [Unknown]

NARRATIVE: CASE EVENT DATE: 201605
